FAERS Safety Report 5571312-3 (Version None)
Quarter: 2007Q4

REPORT INFORMATION
  Report Type: 
  Country: None (occurrence: None)
  Receive Date: 20071221
  Receipt Date: 20070608
  Transmission Date: 20080405
  Serious: No
  Sender: FDA-Public Use
  Company Number: A0655808A

PATIENT
  Sex: Female

DRUGS (1)
  1. FLONASE [Suspect]
     Indication: DRUG USE FOR UNKNOWN INDICATION
     Route: 045
     Dates: start: 20070606

REACTIONS (4)
  - DRUG EFFECT DECREASED [None]
  - EAR DISCOMFORT [None]
  - SINUS HEADACHE [None]
  - SOMNOLENCE [None]
